FAERS Safety Report 16124239 (Version 1)
Quarter: 2019Q1

REPORT INFORMATION
  Report Type: Spontaneous
  Country: CA (occurrence: CA)
  Receive Date: 20190327
  Receipt Date: 20190327
  Transmission Date: 20190418
  Serious: Yes (Other)
  Sender: FDA-Public Use
  Company Number: CA-MYLANLABS-2019M1027054

PATIENT
  Sex: Female
  Weight: 75 kg

DRUGS (2)
  1. OMEPRAZOLE. [Concomitant]
     Active Substance: OMEPRAZOLE
  2. MYLAN-NIFEDIPINE EXTENDED RELEASE [Suspect]
     Active Substance: NIFEDIPINE
     Indication: HYPERTENSION
     Dosage: 60 MILLIGRAM, QD
     Route: 048

REACTIONS (4)
  - Chest pain [Recovered/Resolved]
  - Fatigue [Recovering/Resolving]
  - Drug ineffective [Recovered/Resolved]
  - Dyspnoea [Recovered/Resolved]
